FAERS Safety Report 10311387 (Version 1)
Quarter: 2014Q3

REPORT INFORMATION
  Report Type: Spontaneous
  Country: ES (occurrence: None)
  Receive Date: 20140715
  Receipt Date: 20140715
  Transmission Date: 20150326
  Serious: Yes (Hospitalization, Other)
  Sender: FDA-Public Use
  Company Number: AUR-APL-2014-06700

PATIENT
  Age: 52 Year
  Sex: Female

DRUGS (9)
  1. ALPRAZOLAM (ALPRAZOLAM) [Concomitant]
     Active Substance: ALPRAZOLAM
  2. ATORVASTATIN (ATORVASTATIN) [Concomitant]
     Active Substance: ATORVASTATIN
  3. LAMIVUDINE (LAMIVUDINE) [Concomitant]
     Active Substance: LAMIVUDINE
  4. CLONAZEPAM (CLONAZEPAM) [Concomitant]
  5. LANTUS [Concomitant]
     Active Substance: INSULIN GLARGINE
  6. SIMVASTATIN 40MG (SIMVASTATIN) UNKNOWN, 40MG [Suspect]
     Active Substance: SIMVASTATIN
     Indication: HYPERCHOLESTEROLAEMIA
     Dates: start: 20111115
  7. RITONAVIR (RITONAVIR) [Suspect]
     Active Substance: RITONAVIR
     Indication: HIV INFECTION
     Dosage: 600/100 MG Q/12H, UNKNOWN?
  8. VALPROIC  ACID (VALPROIC ACID) [Concomitant]
     Active Substance: VALPROIC ACID
  9. RALTEGRAVIR (RALTEGRAVIR) [Concomitant]
     Active Substance: RALTEGRAVIR

REACTIONS (5)
  - Economic problem [None]
  - Hepatotoxicity [None]
  - Drug interaction [None]
  - Rhabdomyolysis [None]
  - Renal failure [None]
